FAERS Safety Report 5803349-0 (Version None)
Quarter: 2008Q3

REPORT INFORMATION
  Report Type: 
  Country: None (occurrence: None)
  Receive Date: 20080708
  Receipt Date: 20080701
  Transmission Date: 20090109
  Serious: Yes (Other)
  Sender: FDA-Public Use
  Company Number: US-ASTRAZENECA-2008UW13205

PATIENT
  Age: 48 Year
  Sex: Male
  Weight: 117.9 kg

DRUGS (17)
  1. CRESTOR [Suspect]
     Route: 048
     Dates: start: 20080401, end: 20080624
  2. ZETIA [Concomitant]
  3. PLAVIX [Concomitant]
  4. ASPIRIN [Concomitant]
  5. FLEXERIL [Concomitant]
  6. PROTONIX [Concomitant]
  7. LISINOPRIL [Concomitant]
  8. IMDUR [Concomitant]
  9. CELEXA [Concomitant]
  10. LOPRESSOR [Concomitant]
  11. CALCIUM WITH VITAMIN D [Concomitant]
  12. OMEGA FISH OIL [Concomitant]
  13. FISH OIL [Concomitant]
  14. ASCORBIC ACID [Concomitant]
  15. DARVOCET [Concomitant]
  16. NITROGLYCERIN [Concomitant]
  17. CINNAMON [Concomitant]

REACTIONS (4)
  - ACTIVITIES OF DAILY LIVING IMPAIRED [None]
  - CORONARY ARTERIAL STENT INSERTION [None]
  - PAIN [None]
  - WEIGHT INCREASED [None]
